FAERS Safety Report 9304969 (Version 1)
Quarter: 2013Q1

REPORT INFORMATION
  Report Type: Spontaneous
  Country: US (occurrence: None)
  Receive Date: 20130207
  Receipt Date: 20130207
  Transmission Date: 20140127
  Serious: Yes (Hospitalization, Other)
  Sender: FDA-Public Use
  Company Number: ACO_32653_2012

PATIENT
  Age: 81 Year
  Sex: Female

DRUGS (1)
  1. AMPYRA (DALFAMPRIDINE) TABLET, 10MG [Suspect]
     Indication: GAIT DISTURBANCE
     Route: 048
     Dates: start: 20111209, end: 20111216

REACTIONS (11)
  - Hallucination [None]
  - Fall [None]
  - Compression fracture [None]
  - Urinary tract infection [None]
  - Pain in extremity [None]
  - Gait disturbance [None]
  - Hypertension [None]
  - Headache [None]
  - Back pain [None]
  - Inappropriate schedule of drug administration [None]
  - Drug dose omission [None]
